FAERS Safety Report 14821405 (Version 1)
Quarter: 2018Q2

REPORT INFORMATION
  Report Type: Spontaneous
  Country: RU (occurrence: RU)
  Receive Date: 20180427
  Receipt Date: 20180427
  Transmission Date: 20180711
  Serious: Yes (Hospitalization, Other)
  Sender: FDA-Public Use
  Company Number: RU-BAYER-2018-056304

PATIENT
  Age: 38 Year
  Sex: Female

DRUGS (2)
  1. YARINA [Suspect]
     Active Substance: DROSPIRENONE\ETHINYL ESTRADIOL
     Dosage: UNK
     Route: 048
     Dates: start: 201111, end: 201803
  2. YAZ [Suspect]
     Active Substance: DROSPIRENONE\ETHINYL ESTRADIOL
     Indication: POLYCYSTIC OVARIES
     Dosage: UNK
     Route: 048
     Dates: start: 2011

REACTIONS (6)
  - Off label use [None]
  - Deep vein thrombosis [None]
  - Weight increased [None]
  - Hyperhidrosis [None]
  - Alopecia [None]
  - Product use in unapproved indication [None]

NARRATIVE: CASE EVENT DATE: 20180315
